FAERS Safety Report 8824472 (Version 2)
Quarter: 2012Q4

REPORT INFORMATION
  Report Type: 
  Country: US (occurrence: US)
  Receive Date: 20121004
  Receipt Date: 20121022
  Transmission Date: 20130627
  Serious: Yes (Death, Hospitalization, Other)
  Sender: FDA-Public Use
  Company Number: US-BRISTOL-MYERS SQUIBB COMPANY-17010422

PATIENT
  Age: 70 Year
  Sex: Male

DRUGS (14)
  1. YERVOY [Suspect]
     Indication: MALIGNANT MELANOMA
     Dosage: Second dose and stopped: 22Aug12
     Route: 042
     Dates: start: 20120802, end: 20120822
  2. LOVENOX [Concomitant]
     Dosage: SQ
     Route: 058
  3. PEPCID [Concomitant]
     Dosage: during hospitalization
     Route: 042
  4. COLACE [Concomitant]
     Route: 048
  5. LIDOCAINE [Concomitant]
     Dosage: Patch (on in AM and off in PM)
  6. NITROGLYCERIN [Concomitant]
     Dosage: 5mg/day;patch;(on in AM and off in PM)
  7. METOPROLOL [Concomitant]
     Route: 048
  8. ALBUTEROL INHALER [Concomitant]
     Dosage: 1 DF: 2 sprays with spacer
  9. SYNTHROID [Concomitant]
     Route: 048
     Dates: start: 20120912
  10. SINGULAIR [Concomitant]
     Route: 048
  11. ZOCOR [Concomitant]
     Dosage: tabs;40mg/day
     Route: 048
  12. ZOFRAN [Concomitant]
     Indication: NAUSEA
     Dosage: every six hours;pills
     Route: 048
  13. ASPIRIN [Concomitant]
     Dosage: stopped a year ago.
  14. PROCHLORPERAZINE [Concomitant]
     Indication: NAUSEA
     Dosage: every 6 hours
     Route: 048

REACTIONS (4)
  - Death [Fatal]
  - Deep vein thrombosis [Unknown]
  - Chronic obstructive pulmonary disease [Unknown]
  - Thyroid function test abnormal [Unknown]
